FAERS Safety Report 4570768-2 (Version None)
Quarter: 2005Q1

REPORT INFORMATION
  Report Type: 
  Country: None (occurrence: None)
  Receive Date: 20050204
  Receipt Date: 20050104
  Transmission Date: 20050727
  Serious: Yes (Hospitalization)
  Sender: FDA-Public Use
  Company Number: PHEH2005US00550

PATIENT
  Age: 58 Year
  Sex: Female
  Weight: 97 kg

DRUGS (6)
  1. ECOTRIN [Concomitant]
     Indication: PLATELET COUNT INCREASED
     Dosage: 81 MG, QD
     Route: 048
     Dates: start: 20041025
  2. HYDROCHLOROTHIAZIDE [Concomitant]
  3. ANAGRELIDE HCL [Concomitant]
     Indication: PLATELET COUNT INCREASED
     Dosage: 1 MG, TID
     Route: 048
     Dates: start: 20041025
  4. VITAMIN CAP [Concomitant]
     Dosage: 1 DF, QD
     Route: 048
  5. GLEEVEC [Suspect]
     Indication: CHRONIC MYELOID LEUKAEMIA
     Dosage: 400 MG, QD
     Route: 048
     Dates: start: 20041207, end: 20041216
  6. GLEEVEC [Suspect]
     Dosage: 100 MG, QD
     Route: 048
     Dates: start: 20050110

REACTIONS (4)
  - BRONCHOSPASM [None]
  - DYSPNOEA [None]
  - HYPERSENSITIVITY [None]
  - RASH MACULO-PAPULAR [None]
